FAERS Safety Report 4961361-8 (Version None)
Quarter: 2006Q1

REPORT INFORMATION
  Report Type: 
  Country: None (occurrence: None)
  Receive Date: 20060324
  Receipt Date: 20050926
  Transmission Date: 20060701
  Serious: Yes (Hospitalization)
  Sender: FDA-Public Use
  Company Number: 2005BH001341

PATIENT
  Sex: 0

DRUGS (1)
  1. ALBUMIN (HUMAN) [Suspect]
     Indication: ISCHAEMIC STROKE
     Dosage: UNKNOWN
     Route: 065

REACTIONS (1)
  - BRAIN OEDEMA [None]
